FAERS Safety Report 4940414-4 (Version None)
Quarter: 2006Q1

REPORT INFORMATION
  Report Type: 
  Country: None (occurrence: None)
  Receive Date: 20060127
  Receipt Date: 20050124
  Transmission Date: 20060701
  Serious: Yes (Other)
  Sender: FDA-Public Use
  Company Number: 200510570US

PATIENT

DRUGS (2)
  1. AMARYL [Suspect]
     Dosage: 4 MG
  2. HIV MEDICATION NOS [Concomitant]

REACTIONS (1)
  - HEPATIC ENZYME INCREASED [None]
